FAERS Safety Report 9569798 (Version 1)
Quarter: 2013Q3

REPORT INFORMATION
  Report Type: Spontaneous
  Country: US (occurrence: US)
  Receive Date: 20130930
  Receipt Date: 20130930
  Transmission Date: 20140515
  Serious: No
  Sender: FDA-Public Use
  Company Number: US-AMGEN-USASP2013066065

PATIENT
  Age: 60 Year
  Sex: Female

DRUGS (3)
  1. ENBREL [Suspect]
     Indication: PSORIASIS
     Dosage: 50 MG, QWK
     Route: 065
     Dates: start: 20070301
  2. ENBREL [Suspect]
     Indication: SYSTEMIC LUPUS ERYTHEMATOSUS
  3. ENBREL [Suspect]
     Indication: SCLERODERMA

REACTIONS (5)
  - Nail disorder [Not Recovered/Not Resolved]
  - Onychalgia [Not Recovered/Not Resolved]
  - Influenza [Recovered/Resolved]
  - Psoriasis [Unknown]
  - Onychomycosis [Not Recovered/Not Resolved]
